FAERS Safety Report 7475690-X (Version None)
Quarter: 2011Q2

REPORT INFORMATION
  Report Type: 
  Country: None (occurrence: None)
  Receive Date: 20110512
  Receipt Date: 20110503
  Transmission Date: 20111010
  Serious: Yes (Other)
  Sender: FDA-Public Use
  Company Number: US-ELI_LILLY_AND_COMPANY-US201001001960

PATIENT
  Sex: Female

DRUGS (6)
  1. HUMULIN R [Suspect]
     Dosage: 4 U, UNK
     Dates: start: 20100109
  2. HUMULIN R [Suspect]
     Dosage: UNK, AS NEEDED
  3. ZOSTAVAX [Concomitant]
     Indication: VIITH NERVE PARALYSIS
  4. HUMULIN R [Suspect]
     Indication: TYPE 2 DIABETES MELLITUS
     Dosage: UNK, AS NEEDED
  5. LANTUS [Concomitant]
  6. HUMULIN R [Suspect]
     Dosage: UNK, AS NEEDED

REACTIONS (19)
  - JOINT RANGE OF MOTION DECREASED [None]
  - CATARACT [None]
  - DIABETES MELLITUS INADEQUATE CONTROL [None]
  - CORONARY ARTERY DISEASE [None]
  - LOWER LIMB FRACTURE [None]
  - HYPOGLYCAEMIC UNCONSCIOUSNESS [None]
  - UPPER LIMB FRACTURE [None]
  - AGITATION [None]
  - GAIT DISTURBANCE [None]
  - STRESS [None]
  - GENERAL PHYSICAL HEALTH DETERIORATION [None]
  - BLOOD GLUCOSE INCREASED [None]
  - INTENTIONAL DRUG MISUSE [None]
  - ANGER [None]
  - INSOMNIA [None]
  - MALAISE [None]
  - FALL [None]
  - FATIGUE [None]
  - DRUG INEFFECTIVE [None]
